FAERS Safety Report 6165973-8 (Version None)
Quarter: 2009Q2

REPORT INFORMATION
  Report Type: 
  Country: None (occurrence: None)
  Receive Date: 20090422
  Receipt Date: 20090411
  Transmission Date: 20091009
  Serious: Yes (Disabling)
  Sender: FDA-Public Use
  Company Number: DSA_33404_2009

PATIENT
  Sex: Female
  Weight: 61.2356 kg

DRUGS (5)
  1. XENAZINE [Suspect]
     Indication: HUNTINGTON'S CHOREA
     Dosage: (DF), (12.5 MG BID)
     Dates: start: 20090201, end: 20090301
  2. CYMBALTA [Concomitant]
  3. FOSAMAX [Concomitant]
  4. LEVATAR [Concomitant]
  5. ENBREL [Concomitant]

REACTIONS (3)
  - BACK PAIN [None]
  - CRYING [None]
  - THERAPY CESSATION [None]
